FAERS Safety Report 5348941-5 (Version None)
Quarter: 2007Q2

REPORT INFORMATION
  Report Type: 
  Country: None (occurrence: None)
  Receive Date: 20070607
  Receipt Date: 20070525
  Transmission Date: 20071010
  Serious: Yes (Other)
  Sender: FDA-Public Use
  Company Number: PHEH2007US05787

PATIENT
  Age: 71 Year
  Sex: Female

DRUGS (6)
  1. ZELNORM [Suspect]
     Indication: CONSTIPATION
     Dosage: 6 MG, BID
     Route: 048
     Dates: start: 20040101, end: 20070417
  2. NEXIUM [Concomitant]
     Indication: HIATUS HERNIA
  3. ZOCOR [Concomitant]
  4. ZEBETA [Concomitant]
  5. PLAVIX [Concomitant]
  6. COLACE [Concomitant]
     Indication: CONSTIPATION

REACTIONS (4)
  - ANGIOPLASTY [None]
  - CONSTIPATION [None]
  - MYOCARDIAL INFARCTION [None]
  - STENT PLACEMENT [None]
